FAERS Safety Report 10469780 (Version 1)
Quarter: 2014Q3

REPORT INFORMATION
  Report Type: Spontaneous
  Country: US (occurrence: None)
  Receive Date: 20140922
  Receipt Date: 20140922
  Transmission Date: 20150326
  Serious: Yes (Other)
  Sender: FDA-Public Use
  Company Number: None

PATIENT
  Age: 55 Year
  Sex: Female
  Weight: 54.43 kg

DRUGS (1)
  1. NEOSPORIN [Suspect]
     Active Substance: BACITRACIN ZINC\NEOMYCIN SULFATE\POLYMYXIN B SULFATE
     Indication: BURNS SECOND DEGREE
     Dates: start: 20140910, end: 20140911

REACTIONS (3)
  - Blister [None]
  - Haemorrhage [None]
  - Burns second degree [None]

NARRATIVE: CASE EVENT DATE: 20140911
